FAERS Safety Report 9821985 (Version 2)
Quarter: 2014Q1

REPORT INFORMATION
  Report Type: Report from Study
  Country: ZW (occurrence: ZW)
  Receive Date: 20140116
  Receipt Date: 20140214
  Transmission Date: 20141002
  Serious: Yes (Death)
  Sender: FDA-Public Use
  Company Number: ZW-009507513-1401ZWE005717

PATIENT
  Age: 65 Year
  Sex: Male
  Weight: 80.2 kg

DRUGS (5)
  1. EFAVIRENZ [Suspect]
     Indication: HIV INFECTION
     Dosage: 600 MG, HS
     Route: 048
     Dates: start: 20110627, end: 20131009
  2. LAMIVUDINE (+) ZIDOVUDINE [Suspect]
     Indication: HIV INFECTION
     Dosage: 150/300 MG, BID
     Route: 048
     Dates: start: 20110627, end: 20131009
  3. ENALAPRIL MALEATE [Suspect]
     Indication: COR PULMONALE
     Dosage: 8 MONTHS, QD
     Route: 048
     Dates: end: 20131009
  4. FUROSEMIDE [Suspect]
     Indication: COR PULMONALE
     Dosage: 1 WEEK, BID
     Route: 048
     Dates: end: 20131009
  5. HYDROCHLOROTHIAZIDE [Concomitant]
     Indication: HYPERTENSION
     Dosage: APPROXIMATE 2 YEARS, QD
     Route: 048
     Dates: end: 20131009

REACTIONS (1)
  - Cor pulmonale [Fatal]
